FAERS Safety Report 5808969-5 (Version None)
Quarter: 2008Q3

REPORT INFORMATION
  Report Type: 
  Country: None (occurrence: None)
  Receive Date: 20080710
  Receipt Date: 20080710
  Transmission Date: 20090109
  Serious: Yes (Other)
  Sender: FDA-Public Use
  Company Number: None

PATIENT
  Sex: Female
  Weight: 65.7716 kg

DRUGS (1)
  1. CIPRO [Suspect]
     Indication: SUBCUTANEOUS ABSCESS
     Dosage: 1 TABLET TWICE DAILY PO
     Route: 048
     Dates: start: 20080226, end: 20080306

REACTIONS (3)
  - NEURALGIA [None]
  - TENDON INJURY [None]
  - TENDON RUPTURE [None]
